FAERS Safety Report 7405783-4 (Version None)
Quarter: 2011Q2

REPORT INFORMATION
  Report Type: 
  Country: None (occurrence: None)
  Receive Date: 20110411
  Receipt Date: 20110406
  Transmission Date: 20111010
  Serious: Yes (Other)
  Sender: FDA-Public Use
  Company Number: VE-PFIZER INC-2011076351

PATIENT
  Age: 59 Year
  Sex: Female

DRUGS (3)
  1. LIPITOR [Suspect]
     Dosage: 40 MG, 1X/DAY
     Route: 048
     Dates: start: 20110201
  2. LIPITOR [Suspect]
     Indication: HYPERCHOLESTEROLAEMIA
     Dosage: 20 MG, 1X/DAY
     Route: 048
     Dates: end: 20110201
  3. EUTHYROX [Concomitant]
     Indication: THYROID DISORDER
     Dosage: 75 UG, 1X/DAY
     Route: 048

REACTIONS (1)
  - FOOT FRACTURE [None]
